FAERS Safety Report 5355291-X (Version None)
Quarter: 2007Q2

REPORT INFORMATION
  Report Type: 
  Country: None (occurrence: None)
  Receive Date: 20070531
  Receipt Date: 20070307
  Transmission Date: 20071010
  Serious: Yes (Other)
  Sender: FDA-Public Use
  Company Number: 2007018928

PATIENT
  Age: 57 Year
  Sex: Male
  Weight: 65.8 kg

DRUGS (8)
  1. SOLU-MEDROL [Suspect]
     Dates: start: 20060601, end: 20060601
  2. REBIF [Suspect]
     Indication: MULTIPLE SCLEROSIS
     Dosage: (44 MCG, 3 IN 1 WK), SUBCUTANEOUS
     Route: 058
     Dates: start: 20060320
  3. LISINOPRIL [Concomitant]
  4. TOPROL-XL [Concomitant]
  5. ZOCOR [Concomitant]
  6. ASPIRIN [Concomitant]
  7. ZETIA [Concomitant]
  8. UROXATRAL [Concomitant]

REACTIONS (1)
  - DIABETES MELLITUS [None]
